FAERS Safety Report 17555904 (Version 4)
Quarter: 2021Q3

REPORT INFORMATION
  Report Type: Report from Study
  Country: BG (occurrence: BG)
  Receive Date: 20200318
  Receipt Date: 20210927
  Transmission Date: 20211014
  Serious: Yes (Death, Hospitalization, Other)
  Sender: FDA-Public Use
  Company Number: BG-MYLANLABS-2020M1027277

PATIENT
  Age: 58 Year
  Sex: Female
  Weight: 67 kg

DRUGS (11)
  1. DOCETAXEL. [Suspect]
     Active Substance: DOCETAXEL
     Indication: BREAST CANCER
     Dosage: 125 MILLIGRAM, Q3W(MOST RECENT DOSE WAS ADMINISTERED ON 22/JUN/2017)
     Route: 042
     Dates: start: 20170309
  2. TAXOTERE [Suspect]
     Active Substance: DOCETAXEL
     Indication: BREAST CANCER
     Dosage: MOST RECENT DOSE WAS ADMINISTERED ON 22/JUN/2017
     Route: 042
     Dates: start: 20170309
  3. XELODA [Suspect]
     Active Substance: CAPECITABINE
     Indication: BREAST CANCER
     Dosage: 1500 MILLIGRAM (MOST RECENT DOSE PRIOR TO THE EVENT: 22/FEB/2019)
     Route: 048
     Dates: start: 20190104
  4. RINGERS SOLUTION [Concomitant]
     Active Substance: CALCIUM CHLORIDE\POTASSIUM CHLORIDE\SODIUM CHLORIDE
     Indication: METASTASES TO CENTRAL NERVOUS SYSTEM
     Dosage: UNK
     Dates: start: 20190404, end: 20190410
  5. HUMAN ALBUMIN 20% BEHRING [Concomitant]
     Indication: METASTASES TO CENTRAL NERVOUS SYSTEM
     Dosage: UNK
     Dates: start: 20190404, end: 20190410
  6. DEXAMETHASONE PHOSPHATE [Concomitant]
     Active Substance: DEXAMETHASONE PHOSPHATE
     Indication: METASTASES TO CENTRAL NERVOUS SYSTEM
     Dosage: ONGOING = NOT CHECKED
     Dates: start: 20190404, end: 20190410
  7. MANNITOL. [Concomitant]
     Active Substance: MANNITOL
     Indication: METASTASES TO CENTRAL NERVOUS SYSTEM
     Dosage: ONGOING = NOT CHECKED
     Dates: start: 20190404, end: 20190410
  8. CALCIUM GLUCONATE                  /01282001/ [Concomitant]
     Indication: METASTASES TO CENTRAL NERVOUS SYSTEM
     Dosage: UNK (ONGOING = NOT CHECKED )
     Dates: start: 20190404, end: 20190410
  9. TRASTUZUMAB. [Suspect]
     Active Substance: TRASTUZUMAB
     Indication: BREAST CANCER
     Dosage: 520 MILLIGRAM, BIWEEKLY (MOST RECENT DOSE PRIOR TO THE EVENT: 20/APR/2017)
     Route: 041
     Dates: start: 20170330
  10. PERTUZUMAB. [Suspect]
     Active Substance: PERTUZUMAB
     Indication: BREAST CANCER
     Dosage: MOST RECENT DOSE PRIOR TO THE EVENT: 20/APR/2017
     Route: 042
     Dates: start: 20170330
  11. TYKERB [Suspect]
     Active Substance: LAPATINIB DITOSYLATE
     Indication: BREAST CANCER
     Dosage: 1000 MILLIGRAM, QD (MOST RECENT WAS ADMINISTERED ON 04/APR/2019)
     Route: 048
     Dates: start: 20190114

REACTIONS (1)
  - Metastases to central nervous system [Fatal]

NARRATIVE: CASE EVENT DATE: 20190404
